FAERS Safety Report 24118622 (Version 2)
Quarter: 2024Q3

REPORT INFORMATION
  Report Type: Other
  Country: CA (occurrence: CA)
  Receive Date: 20240722
  Receipt Date: 20240821
  Transmission Date: 20241016
  Serious: Yes (Other)
  Sender: APOTEX
  Company Number: CA-APOTEX-2024AP008449

PATIENT
  Age: 67 Year
  Sex: Male

DRUGS (2)
  1. POMALIDOMIDE [Suspect]
     Active Substance: POMALIDOMIDE
     Indication: Plasma cell myeloma
     Dosage: UNK
     Route: 048
     Dates: start: 20220810
  2. POMALIDOMIDE [Suspect]
     Active Substance: POMALIDOMIDE
     Dosage: 3 MILLIGRAM, QD, 21 OF 28 DAYS
     Route: 048
     Dates: start: 202404, end: 202406

REACTIONS (3)
  - Plasma cell myeloma [Unknown]
  - Palliative care [Unknown]
  - Drug ineffective [Unknown]

NARRATIVE: CASE EVENT DATE: 20240601
